FAERS Safety Report 4508850-8 (Version None)
Quarter: 2004Q4

REPORT INFORMATION
  Report Type: 
  Country: None (occurrence: None)
  Receive Date: 20041118
  Receipt Date: 20041105
  Transmission Date: 20050328
  Serious: Yes (Other)
  Sender: FDA-Public Use
  Company Number: 2004089766

PATIENT
  Sex: Female

DRUGS (1)
  1. TRANEXAMIC ACID (TRANEXAMIC ACID) [Suspect]
     Indication: MENORRHAGIA
     Dosage: ORAL
     Route: 048

REACTIONS (2)
  - EMBOLIC STROKE [None]
  - SUBARACHNOID HAEMORRHAGE [None]
